FAERS Safety Report 8445430-6 (Version None)
Quarter: 2012Q2

REPORT INFORMATION
  Report Type: 
  Country: None (occurrence: None)
  Receive Date: 20120618
  Receipt Date: 20120618
  Transmission Date: 20120825
  Serious: Yes (Hospitalization)
  Sender: FDA-Public Use
  Company Number: FR-PFIZER INC-2012126575

PATIENT
  Age: 71 Year
  Sex: Male

DRUGS (9)
  1. ALDACTONE [Suspect]
     Dosage: 75 MG, 1X/DAY
     Route: 048
     Dates: start: 20111214, end: 20120229
  2. LASIX [Suspect]
     Dosage: 60 MG (1.5 DF), 1X/DAY
     Route: 048
     Dates: end: 20120229
  3. LERCANIDIPINE [Concomitant]
     Dosage: 10 MG, DAILY
     Route: 048
  4. ALDACTONE [Suspect]
     Dosage: 50 MG, 1X/DAY
     Route: 048
     Dates: end: 20120229
  5. NEXIUM [Concomitant]
     Dosage: 40 MG, DAILY
     Route: 048
  6. LANTUS [Concomitant]
     Dosage: 22 IU, 1X/DAY
     Route: 058
  7. DUPHALAC [Concomitant]
     Dosage: 20 G, 2X/DAY
     Route: 048
  8. PROPRANOLOL [Concomitant]
     Dosage: 160 MG, DAILY
     Route: 048
  9. ALLOPURINOL [Concomitant]
     Dosage: 200 MG, DAILY
     Route: 048

REACTIONS (1)
  - HYPERAMMONAEMIC ENCEPHALOPATHY [None]
